FAERS Safety Report 9838903 (Version 2)
Quarter: 2014Q1

REPORT INFORMATION
  Report Type: Spontaneous
  Country: DK (occurrence: FR)
  Receive Date: 20140123
  Receipt Date: 20140225
  Transmission Date: 20141002
  Serious: Yes (Life-Threatening)
  Sender: FDA-Public Use
  Company Number: FR-FRI-1000053035

PATIENT
  Age: 43 Year
  Sex: Male

DRUGS (7)
  1. CITALOPRAM [Suspect]
     Route: 042
     Dates: start: 20131209, end: 20131210
  2. INVANZ [Suspect]
     Route: 042
     Dates: start: 20131109
  3. PIPERACILIN/TAZOBACTAM [Suspect]
     Route: 042
     Dates: start: 20131109
  4. CANCIDAS [Suspect]
     Route: 042
     Dates: start: 20131109
  5. TRIFLUCAN [Suspect]
     Route: 048
     Dates: start: 20131109
  6. BECOTIDE [Concomitant]
  7. VENTOLINE [Concomitant]

REACTIONS (1)
  - Atrioventricular block complete [Recovered/Resolved with Sequelae]
